FAERS Safety Report 25131259 (Version 1)
Quarter: 2025Q1

REPORT INFORMATION
  Report Type: Spontaneous
  Country: GB (occurrence: GB)
  Receive Date: 20250327
  Receipt Date: 20250327
  Transmission Date: 20250409
  Serious: Yes (Death, Hospitalization)
  Sender: IPSEN BIOPHARMACEUTICALS, INC.
  Company Number: GB-IPSEN Group, Research and Development-2025-02948

PATIENT
  Sex: Female

DRUGS (1)
  1. LANREOTIDE ACETATE [Suspect]
     Active Substance: LANREOTIDE ACETATE
     Indication: Product used for unknown indication
     Route: 065

REACTIONS (18)
  - Hepatic cancer [Fatal]
  - Dyspnoea [Unknown]
  - Heart rate irregular [Unknown]
  - Confusional state [Unknown]
  - Decreased appetite [Unknown]
  - Contusion [Unknown]
  - Joint swelling [Unknown]
  - Peripheral swelling [Unknown]
  - Feeling cold [Unknown]
  - Pallor [Unknown]
  - Back pain [Unknown]
  - Abdominal pain upper [Unknown]
  - Dizziness [Unknown]
  - Nausea [Unknown]
  - Fatigue [Unknown]
  - Pruritus [Unknown]
  - Weight decreased [Unknown]
  - Headache [Unknown]

NARRATIVE: CASE EVENT DATE: 20240101
